FAERS Safety Report 23410049 (Version 2)
Quarter: 2024Q1

REPORT INFORMATION
  Report Type: Spontaneous
  Country: US (occurrence: US)
  Receive Date: 20240117
  Receipt Date: 20240212
  Transmission Date: 20240410
  Serious: No
  Sender: FDA-Public Use
  Company Number: US-009507513-2401USA006739

PATIENT
  Sex: Female

DRUGS (1)
  1. KEYTRUDA [Suspect]
     Active Substance: PEMBROLIZUMAB
     Indication: Non-small cell lung cancer
     Dosage: 200 MILLIGRAM, Q3W (EVERY 21 DAYS)
     Route: 042
     Dates: start: 20231012, end: 20240111

REACTIONS (2)
  - Pruritus [Not Recovered/Not Resolved]
  - Immune-mediated dermatitis [Not Recovered/Not Resolved]
